FAERS Safety Report 18067931 (Version 2)
Quarter: 2020Q3

REPORT INFORMATION
  Report Type: Spontaneous
  Country: CN (occurrence: CN)
  Receive Date: 20200724
  Receipt Date: 20200909
  Transmission Date: 20201103
  Serious: Yes (Hospitalization, Other)
  Sender: FDA-Public Use
  Company Number: CN-BAYER-2020-143283

PATIENT
  Age: 56 Year
  Sex: Male

DRUGS (6)
  1. PRAZIQUANTEL. [Suspect]
     Active Substance: PRAZIQUANTEL
     Indication: NEUROCYSTICERCOSIS
     Dosage: 20 MG, QD
     Dates: start: 201104, end: 201104
  2. PRAZIQUANTEL. [Suspect]
     Active Substance: PRAZIQUANTEL
     Indication: NEUROCYSTICERCOSIS
     Dosage: 20 MG, QD, PATIENT WAS PRESCRIBED THE SAME COURSES INTERMITTENTLY FOR TEN MORE TIMES
     Dates: start: 201104, end: 201312
  3. PRAZIQUANTEL. [Suspect]
     Active Substance: PRAZIQUANTEL
     Indication: NEUROCYSTICERCOSIS
     Dosage: 40 MG, QD
     Dates: start: 201806, end: 201806
  4. PRAZIQUANTEL. [Suspect]
     Active Substance: PRAZIQUANTEL
     Indication: NEUROCYSTICERCOSIS
     Dosage: 40 MG, QD
     Dates: start: 201812, end: 201812
  5. ALBENDAZOLE. [Concomitant]
     Active Substance: ALBENDAZOLE
     Indication: NEUROCYSTICERCOSIS
     Dosage: 20 MG, QD, AND TWELVE SAME
     Dates: start: 201402, end: 201801
  6. PRAZIQUANTEL. [Suspect]
     Active Substance: PRAZIQUANTEL
     Indication: NEUROCYSTICERCOSIS
     Dosage: 20 MG, QD, AND TWELVE SAME
     Dates: start: 201402, end: 201801

REACTIONS (6)
  - Product use in unapproved indication [None]
  - Pancytopenia [Recovered/Resolved]
  - Pancytopenia [Recovered/Resolved]
  - Contraindicated product administered [None]
  - Off label use [None]
  - Seizure [Recovered/Resolved]

NARRATIVE: CASE EVENT DATE: 201806
